FAERS Safety Report 9586185 (Version 2)
Quarter: 2014Q1

REPORT INFORMATION
  Report Type: Spontaneous
  Country: GB (occurrence: None)
  Receive Date: 20131001
  Receipt Date: 20140131
  Transmission Date: 20141002
  Serious: Yes (Life-Threatening, Hospitalization, Other)
  Sender: FDA-Public Use
  Company Number: 2013AP008140

PATIENT
  Age: 64 Year
  Sex: Male

DRUGS (7)
  1. AMISULPRIDE [Suspect]
     Indication: SCHIZOPHRENIA
     Route: 048
     Dates: end: 20130829
  2. PAROXETINE [Suspect]
     Route: 048
  3. OLANZAPINE [Suspect]
     Indication: SCHIZOPHRENIA
     Route: 048
     Dates: end: 20130830
  4. METFORMIN (METFORMIN) [Concomitant]
  5. PIOGLITAZONE (PIOGLITAZONE) [Concomitant]
  6. SIMVASTATIN (SIMVASTATIN) [Concomitant]
  7. ZOPICLONE (ZOPICLONE) [Concomitant]

REACTIONS (3)
  - Blood creatine phosphokinase increased [None]
  - Neuroleptic malignant syndrome [None]
  - Fall [None]
